FAERS Safety Report 14422692 (Version 5)
Quarter: 2019Q1

REPORT INFORMATION
  Report Type: Spontaneous
  Country: FR (occurrence: FR)
  Receive Date: 20180123
  Receipt Date: 20190118
  Transmission Date: 20190417
  Serious: Yes (Other)
  Sender: FDA-Public Use
  Company Number: FR-BRISTOL-MYERS SQUIBB COMPANY-BMS-2018-005113

PATIENT
  Age: 62 Year
  Sex: Female
  Weight: 57 kg

DRUGS (2)
  1. ELIQUIS [Suspect]
     Active Substance: APIXABAN
     Indication: CEREBROVASCULAR ACCIDENT PROPHYLAXIS
     Dosage: 5 MG, BID
     Route: 048
  2. ELIQUIS [Suspect]
     Active Substance: APIXABAN
     Indication: PULMONARY EMBOLISM
     Dosage: 5 MG, BID
     Route: 048
     Dates: start: 20170529, end: 201708

REACTIONS (11)
  - Alopecia [Unknown]
  - Paraesthesia [Recovered/Resolved]
  - Hiatus hernia [Unknown]
  - Flatulence [Unknown]
  - Malaise [Unknown]
  - Fatigue [Unknown]
  - Gastrointestinal haemorrhage [Unknown]
  - Sensory disturbance [Unknown]
  - Limb mass [Unknown]
  - Nail disorder [Unknown]
  - Skin fragility [Unknown]

NARRATIVE: CASE EVENT DATE: 201706
